FAERS Safety Report 16582839 (Version 1)
Quarter: 2019Q3

REPORT INFORMATION
  Report Type: Spontaneous
  Country: US (occurrence: US)
  Receive Date: 20190717
  Receipt Date: 20190717
  Transmission Date: 20191004
  Serious: No
  Sender: FDA-Public Use
  Company Number: US-SCIEGEN PHARMACEUTICALS INC-2019SCISPO00217

PATIENT

DRUGS (2)
  1. DEMECLOCYCLINE [Concomitant]
     Active Substance: DEMECLOCYCLINE
  2. RALOXIFENE HYDROCHLORIDE. [Suspect]
     Active Substance: RALOXIFENE HYDROCHLORIDE

REACTIONS (1)
  - Breast enlargement [Not Recovered/Not Resolved]

NARRATIVE: CASE EVENT DATE: 20190701
